FAERS Safety Report 24642653 (Version 6)
Quarter: 2025Q1

REPORT INFORMATION
  Report Type: Spontaneous
  Country: GR (occurrence: GR)
  Receive Date: 20241120
  Receipt Date: 20250221
  Transmission Date: 20250409
  Serious: Yes (Death, Life-Threatening, Hospitalization, Other)
  Sender: MERCK SHARP & DOHME LLC
  Company Number: GR-009507513-2411GRC006508

PATIENT
  Age: 75 Year
  Sex: Male

DRUGS (1)
  1. KEYTRUDA [Suspect]
     Active Substance: PEMBROLIZUMAB
     Indication: Malignant melanoma
     Dosage: DOSE DESCRIPTION : 200 MILLIGRAM, EVERY 3 WEEKS (Q3W)?DAILY DOSE : 9.4 MILLIGRAM?REGIMEN DOSE : 2...
     Dates: start: 20240924, end: 20240924

REACTIONS (8)
  - Sepsis [Fatal]
  - Pulmonary embolism [Fatal]
  - Immune-mediated myasthenia gravis [Not Recovered/Not Resolved]
  - Immune-mediated myocarditis [Not Recovered/Not Resolved]
  - Immune-mediated myositis [Not Recovered/Not Resolved]
  - Muscular weakness [Fatal]
  - Myocarditis [Fatal]
  - Myositis [Fatal]

NARRATIVE: CASE EVENT DATE: 20240101
